FAERS Safety Report 5278866-5 (Version None)
Quarter: 2007Q1

REPORT INFORMATION
  Report Type: 
  Country: None (occurrence: None)
  Receive Date: 20070328
  Receipt Date: 20070320
  Transmission Date: 20070707
  Serious: Yes (Life-Threatening, Hospitalization, Other)
  Sender: FDA-Public Use
  Company Number: JP-MERCK-0612USA03780

PATIENT
  Age: 62 Year
  Sex: Male
  Weight: 50 kg

DRUGS (5)
  1. FOSAMAX [Suspect]
     Indication: OSTEOPOROSIS
     Route: 048
     Dates: start: 20060929, end: 20061204
  2. TAKEPRON [Suspect]
     Indication: GASTRIC ULCER
     Route: 048
     Dates: start: 20060928, end: 20061204
  3. BAKTAR [Suspect]
     Indication: INFECTION PROPHYLAXIS
     Route: 048
     Dates: start: 20061014, end: 20061203
  4. PREDONINE [Concomitant]
     Route: 048
     Dates: start: 20061113, end: 20061203
  5. PREDONINE [Concomitant]
     Route: 048
     Dates: start: 20061204

REACTIONS (6)
  - AGRANULOCYTOSIS [None]
  - EPIGLOTTITIS [None]
  - PHARYNGITIS [None]
  - PLATELET COUNT DECREASED [None]
  - SEPSIS [None]
  - TONSILLITIS [None]
